FAERS Safety Report 11272478 (Version 2)
Quarter: 2015Q3

REPORT INFORMATION
  Report Type: Spontaneous
  Country: JP (occurrence: JP)
  Receive Date: 20150715
  Receipt Date: 20150804
  Transmission Date: 20151125
  Serious: Yes (Other)
  Sender: FDA-Public Use
  Company Number: JP-MYLANLABS-2015M1023773

PATIENT

DRUGS (2)
  1. CARBOPLATIN. [Suspect]
     Active Substance: CARBOPLATIN
     Indication: OVARIAN CANCER STAGE II
     Route: 050
  2. PACLITAXEL. [Concomitant]
     Active Substance: PACLITAXEL
     Indication: OVARIAN CANCER STAGE II
     Route: 065

REACTIONS (5)
  - Hypersensitivity [Unknown]
  - Vomiting [Unknown]
  - Paraesthesia [Unknown]
  - Pruritus [Unknown]
  - Dyspepsia [Unknown]
